FAERS Safety Report 5082688-8 (Version None)
Quarter: 2006Q3

REPORT INFORMATION
  Report Type: 
  Country: None (occurrence: None)
  Receive Date: 20060816
  Receipt Date: 20060816
  Transmission Date: 20061208
  Serious: Yes (Hospitalization)
  Sender: FDA-Public Use
  Company Number: None

PATIENT
  Age: 15 Year
  Sex: Male
  Weight: 72.5755 kg

DRUGS (2)
  1. AMNESTEEM [Suspect]
     Indication: ACNE
     Dosage: 1 QD PO
     Route: 048
     Dates: start: 20060609, end: 20060710
  2. SOTRET [Suspect]
     Indication: ACNE
     Dosage: 1 QD PO
     Route: 048
     Dates: start: 20060710, end: 20060719

REACTIONS (6)
  - BLOOD PRESSURE INCREASED [None]
  - DIZZINESS [None]
  - DRUG INEFFECTIVE [None]
  - HEADACHE [None]
  - PHOTOPHOBIA [None]
  - SYNCOPE [None]
